FAERS Safety Report 6815428-X (Version None)
Quarter: 2010Q3

REPORT INFORMATION
  Report Type: 
  Country: None (occurrence: None)
  Receive Date: 20100702
  Receipt Date: 20100607
  Transmission Date: 20110219
  Serious: Yes (Other)
  Sender: FDA-Public Use
  Company Number: PHHY2010US37765

PATIENT
  Sex: Male

DRUGS (8)
  1. ENABLEX [Suspect]
     Dosage: 15 MG
     Route: 048
  2. AVAPRO [Concomitant]
  3. ALLOPURINOL [Concomitant]
     Dosage: 2
  4. ASPIRIN [Concomitant]
     Dosage: 1
  5. COQ10 [Concomitant]
  6. CENTRUM SILVER [Concomitant]
  7. FISH OIL [Concomitant]
  8. DILANTIN                                /AUS/ [Concomitant]
     Dosage: 3 PILLS IN EVENING

REACTIONS (5)
  - DRUG INEFFECTIVE [None]
  - NOCTURIA [None]
  - POLLAKIURIA [None]
  - POOR QUALITY SLEEP [None]
  - PROSTATIC OPERATION [None]
